FAERS Safety Report 24334692 (Version 2)
Quarter: 2024Q3

REPORT INFORMATION
  Report Type: Spontaneous
  Country: CN (occurrence: CN)
  Receive Date: 20240918
  Receipt Date: 20240923
  Transmission Date: 20241017
  Serious: Yes (Hospitalization, Other)
  Sender: BRISTOL MYERS SQUIBB
  Company Number: CN-BRISTOL-MYERS SQUIBB COMPANY-2024-143922

PATIENT
  Age: 81 Year
  Sex: Male
  Weight: 63 kg

DRUGS (3)
  1. AZACITIDINE [Suspect]
     Active Substance: AZACITIDINE
     Indication: Chronic myeloid leukaemia
     Route: 058
     Dates: start: 20240815, end: 20240821
  2. IMIPENEM AND CILASTATIN [Suspect]
     Active Substance: CILASTATIN SODIUM\IMIPENEM
     Indication: Pneumonia
     Route: 041
     Dates: start: 20240810, end: 20240826
  3. TIGECYCLINE [Suspect]
     Active Substance: TIGECYCLINE
     Indication: Pneumonia
     Route: 041
     Dates: start: 20240808, end: 20240826

REACTIONS (3)
  - Off label use [Unknown]
  - Thrombocytopenia [Recovering/Resolving]
  - Blood bilirubin increased [Recovering/Resolving]

NARRATIVE: CASE EVENT DATE: 20240818
